FAERS Safety Report 9817265 (Version 2)
Quarter: 2014Q1

REPORT INFORMATION
  Report Type: Spontaneous
  Country: US (occurrence: US)
  Receive Date: 20140115
  Receipt Date: 20140120
  Transmission Date: 20141002
  Serious: Yes (Other)
  Sender: FDA-Public Use
  Company Number: US-PFIZER INC-2014008138

PATIENT
  Age: 68 Year
  Sex: Male

DRUGS (8)
  1. LIDOCAINE HCL [Suspect]
     Dosage: ON POD 3 24:00, AT 2G IV FOR ONE DOSE
     Route: 041
  2. LIDOCAINE HCL [Suspect]
     Dosage: ON POD 3 24:00, AT 1-2 MG/MIN IV
     Route: 041
  3. DEXMEDETOMIDINE [Suspect]
     Indication: SEDATION
     Dosage: ON POD 5 AT 1300, AT 0.8 UG/KG/H
  4. FENTANYL [Concomitant]
     Indication: SEDATION
     Dosage: ON POD 2
  5. LORAZEPAM [Concomitant]
     Indication: SEDATION
     Dosage: ON POD 2
  6. VANCOMYCIN [Concomitant]
  7. LEVOFLOXACIN [Concomitant]
  8. PIPERACILLIN SODIUM/TAZOBACTAM [Concomitant]

REACTIONS (1)
  - Pyrexia [Recovered/Resolved]
